FAERS Safety Report 7756646-6 (Version None)
Quarter: 2011Q3

REPORT INFORMATION
  Report Type: 
  Country: None (occurrence: None)
  Receive Date: 20110915
  Receipt Date: 20110915
  Transmission Date: 20111222
  Serious: Yes (Other)
  Sender: FDA-Public Use
  Company Number: None

PATIENT
  Sex: Male
  Weight: 17 kg

DRUGS (4)
  1. KEPPRA [Suspect]
     Indication: AUTISM
     Dosage: 250MG BID ORAL; 150MG BID ORAL
     Route: 048
     Dates: start: 20110730
  2. KEPPRA [Suspect]
     Indication: EPILEPSY
     Dosage: 250MG BID ORAL; 150MG BID ORAL
     Route: 048
     Dates: start: 20110730
  3. KEPPRA [Suspect]
     Indication: AUTISM
     Dosage: 250MG BID ORAL; 150MG BID ORAL
     Route: 048
     Dates: start: 20100402
  4. KEPPRA [Suspect]
     Indication: EPILEPSY
     Dosage: 250MG BID ORAL; 150MG BID ORAL
     Route: 048
     Dates: start: 20100402

REACTIONS (3)
  - AGGRESSION [None]
  - BITE [None]
  - SOFT TISSUE INJURY [None]
